FAERS Safety Report 19956747 (Version 5)
Quarter: 2021Q4

REPORT INFORMATION
  Report Type: Report from Study
  Country: CN (occurrence: CN)
  Receive Date: 20211014
  Receipt Date: 20211101
  Transmission Date: 20220303
  Serious: Yes (Hospitalization)
  Sender: FDA-Public Use
  Company Number: NVSC2021CN232091

PATIENT
  Age: 74 Year
  Sex: Female
  Weight: 52 kg

DRUGS (8)
  1. CAPMATINIB [Suspect]
     Active Substance: CAPMATINIB
     Indication: Non-small cell lung cancer
     Dosage: 400 MG, BID
     Route: 048
     Dates: start: 20210927, end: 20211005
  2. CAPMATINIB [Suspect]
     Active Substance: CAPMATINIB
     Dosage: 300 MG, BID
     Route: 048
     Dates: start: 20211012
  3. VITAMIN B [Concomitant]
     Active Substance: VITAMIN B
     Indication: Decreased appetite
     Dosage: UNK
     Route: 065
     Dates: start: 20211001, end: 20211008
  4. ATORVASTATIN CALCIUM [Concomitant]
     Active Substance: ATORVASTATIN CALCIUM
     Indication: Hypertriglyceridaemia
     Dosage: UNK
     Route: 065
     Dates: start: 20210923
  5. SODIUM HYALURONATE [Concomitant]
     Active Substance: HYALURONATE SODIUM
     Indication: Cataract
     Dosage: UNK
     Route: 065
     Dates: start: 20210601
  6. ZOPICLONE [Concomitant]
     Active Substance: ZOPICLONE
     Indication: Sleep disorder
     Dosage: UNK
     Route: 065
     Dates: start: 20210801
  7. METOCLOPRAMIDE [Concomitant]
     Active Substance: METOCLOPRAMIDE
     Indication: Vomiting
     Dosage: UNK
     Route: 065
     Dates: start: 20211003, end: 20211004
  8. VITAMIN C [Concomitant]
     Active Substance: ASCORBIC ACID
     Indication: Decreased appetite
     Dosage: UNK
     Route: 065
     Dates: start: 20211001, end: 20211008

REACTIONS (1)
  - Pustule [Recovering/Resolving]

NARRATIVE: CASE EVENT DATE: 20211003
